FAERS Safety Report 9066269 (Version 3)
Quarter: 2013Q1

REPORT INFORMATION
  Report Type: Spontaneous
  Country: FR (occurrence: FR)
  Receive Date: 20130214
  Receipt Date: 20130314
  Transmission Date: 20140127
  Serious: Yes (Hospitalization)
  Sender: FDA-Public Use
  Company Number: FR-SANOFI-AVENTIS-2013SA011930

PATIENT
  Age: 58 Year
  Sex: Male
  Weight: 69 kg

DRUGS (6)
  1. TAXOTERE [Suspect]
     Indication: PROSTATE CANCER METASTATIC
     Dosage: FREQUENCY- EVERY 21 DAYS
     Route: 042
     Dates: start: 20120103, end: 20120103
  2. DOCETAXEL [Suspect]
     Indication: PROSTATE CANCER METASTATIC
     Dosage: FREQUENCY- EVERY 21 DAYS?STRENGTH- 20 MG/ML
     Route: 042
     Dates: start: 20120127, end: 20120217
  3. METOJECT [Concomitant]
     Indication: RHEUMATOID ARTHRITIS
     Route: 058
  4. NOVOMIX [Concomitant]
     Indication: DIABETES MELLITUS
     Route: 058
  5. CORTANCYL [Concomitant]
     Indication: RHEUMATOID ARTHRITIS
     Route: 048
  6. ZOMETA [Concomitant]
     Indication: BONE LESION
     Dosage: FREQUENCY: EVERY 6 WEEKS
     Route: 042
     Dates: start: 20120103

REACTIONS (2)
  - Myofascitis [Recovered/Resolved]
  - Myofascial pain syndrome [Recovered/Resolved]
